FAERS Safety Report 5567624-X (Version None)
Quarter: 2007Q4

REPORT INFORMATION
  Report Type: 
  Country: None (occurrence: None)
  Receive Date: 20071214
  Receipt Date: 20071203
  Transmission Date: 20080405
  Serious: Yes (Death)
  Sender: FDA-Public Use
  Company Number: MPS1-10783

PATIENT
  Sex: Male
  Weight: 17.1 kg

DRUGS (5)
  1. ALDURAZYME [Suspect]
     Indication: MUCOPOLYSACCHARIDOSIS I
     Dosage: 0.58 MG/KG QWK IV
     Route: 042
     Dates: start: 20030911, end: 20071107
  2. PULMICORT [Concomitant]
  3. XOPENEX [Concomitant]
  4. ALBUTEROL [Concomitant]
  5. CLARITHROMYCIN [Concomitant]

REACTIONS (2)
  - ASPIRATION [None]
  - RESPIRATORY ARREST [None]
